FAERS Safety Report 8949115 (Version 2)
Quarter: 2012Q4

REPORT INFORMATION
  Report Type: 
  Country: DE (occurrence: DE)
  Receive Date: 20121206
  Receipt Date: 20121214
  Transmission Date: 20130627
  Serious: Yes (Death)
  Sender: FDA-Public Use
  Company Number: DE-PFIZER INC-2012303309

PATIENT
  Age: 74 Year
  Sex: Female

DRUGS (2)
  1. TEMSIROLIMUS [Suspect]
     Indication: RENAL CELL CARCINOMA
     Dosage: 25 mg, weekly
  2. TEMSIROLIMUS [Suspect]
     Indication: METASTASES TO LIVER

REACTIONS (10)
  - Death [Fatal]
  - Disease progression [Unknown]
  - Renal cell carcinoma [Unknown]
  - Osteolysis [Unknown]
  - Oedema peripheral [Unknown]
  - Eyelid oedema [Unknown]
  - Blood creatinine increased [Unknown]
  - Mucosal inflammation [Unknown]
  - Rash [Unknown]
  - Diarrhoea [Unknown]
